FAERS Safety Report 18609597 (Version 2)
Quarter: 2021Q1

REPORT INFORMATION
  Report Type: Spontaneous
  Country: US (occurrence: US)
  Receive Date: 20201214
  Receipt Date: 20210305
  Transmission Date: 20210419
  Serious: No
  Sender: FDA-Public Use
  Company Number: US-GLENMARK PHARMACEUTICALS-2020GMK050126

PATIENT

DRUGS (2)
  1. CLOBETASOL PROPIONATE OINTMENT USP [Suspect]
     Active Substance: CLOBETASOL PROPIONATE
     Dosage: UNK, BID; TOPICAL USE ON ARMS AND LEGS
     Route: 061
     Dates: start: 20201011, end: 20201015
  2. CLOBETASOL PROPIONATE OINTMENT USP [Suspect]
     Active Substance: CLOBETASOL PROPIONATE
     Indication: PSORIASIS
     Dosage: UNK, BID (TWICE DAILY ON TOPICAL USE ON ARMS AND LEGS)
     Route: 061
     Dates: start: 20200705, end: 20200708

REACTIONS (4)
  - Product odour abnormal [Unknown]
  - Product quality issue [Unknown]
  - Dry skin [Unknown]
  - Product physical consistency issue [Unknown]

NARRATIVE: CASE EVENT DATE: 202010
